FAERS Safety Report 23804083 (Version 1)
Quarter: 2024Q2

REPORT INFORMATION
  Report Type: Spontaneous
  Country: US (occurrence: None)
  Receive Date: 20240430
  Receipt Date: 20240430
  Transmission Date: 20240716
  Serious: No
  Sender: FDA-Public Use
  Company Number: None

PATIENT
  Age: 73 Year
  Sex: Male
  Weight: 95.25 kg

DRUGS (3)
  1. PEMBROLIZUMAB [Suspect]
     Active Substance: PEMBROLIZUMAB
     Dates: start: 20220201, end: 20230117
  2. FLUOROURACIL [Suspect]
     Active Substance: FLUOROURACIL
  3. CARBOPLATIN [Suspect]
     Active Substance: CARBOPLATIN
     Indication: Tonsil cancer

REACTIONS (6)
  - Myocarditis [None]
  - Cardiac failure [None]
  - Myocardial ischaemia [None]
  - Aortic stenosis [None]
  - Atrioventricular block [None]
  - Refusal of treatment by patient [None]

NARRATIVE: CASE EVENT DATE: 20230117
